FAERS Safety Report 8174938 (Version 3)
Quarter: 2013Q1

REPORT INFORMATION
  Report Type: Spontaneous
  Country: US (occurrence: None)
  Receive Date: 20110927
  Receipt Date: 20130228
  Transmission Date: 20140127
  Serious: Yes (Hospitalization, Other)
  Sender: FDA-Public Use
  Company Number: JPI-P-017046

PATIENT
  Age: 37 Year
  Sex: Female
  Weight: 92.08 kg

DRUGS (10)
  1. XYREM [Suspect]
     Indication: NARCOLEPSY
     Dosage: NIGHTLY
     Route: 048
     Dates: start: 20100421, end: 2010
  2. XYREM [Suspect]
     Indication: SOMNOLENCE
     Dosage: NIGHTLY
     Route: 048
     Dates: start: 20100421, end: 2010
  3. ALOSETRON [Suspect]
     Indication: DIARRHOEA
     Dates: end: 2012
  4. ARMODAFINIL [Concomitant]
  5. CYCLOBENZAPRINE [Concomitant]
  6. NAPROXEN [Concomitant]
  7. HYDROCODONE [Concomitant]
     Dosage: AS REQUIRED
  8. ESCITALOPRAM [Suspect]
  9. PANTOPRAZOLE SODIUM [Suspect]
  10. VALACYCLOVIR [Suspect]

REACTIONS (15)
  - Transient ischaemic attack [None]
  - Intervertebral disc protrusion [None]
  - Oral herpes [None]
  - Diarrhoea [None]
  - Weight decreased [None]
  - Pancreatic enzyme abnormality [None]
  - Rectal haemorrhage [None]
  - Fibromyalgia [None]
  - Chronic fatigue syndrome [None]
  - Intervertebral disc degeneration [None]
  - Osteoarthritis [None]
  - Spinal meningeal cyst [None]
  - Road traffic accident [None]
  - Oesophageal disorder [None]
  - Hiatus hernia [None]
